FAERS Safety Report 15020544 (Version 2)
Quarter: 2018Q2

REPORT INFORMATION
  Report Type: Report from Study
  Country: IT (occurrence: IT)
  Receive Date: 20180618
  Receipt Date: 20180628
  Transmission Date: 20180711
  Serious: Yes (Other)
  Sender: FDA-Public Use
  Company Number: IT-CONCORDIA PHARMACEUTICALS INC.-E2B_00012562

PATIENT
  Age: 82 Year
  Sex: Female

DRUGS (5)
  1. ZUGLIMET [Concomitant]
     Active Substance: METFORMIN HYDROCHLORIDE
  2. ALLOPURINOLO TEVA [Concomitant]
  3. EUTIROX 25 MICROGRAMMI COMPRESSE [Concomitant]
     Active Substance: LEVOTHYROXINE SODIUM
  4. LANOXIN [Suspect]
     Active Substance: DIGOXIN
     Indication: CARDIAC FAILURE
     Route: 048
  5. RIVOTRIL [Concomitant]
     Active Substance: CLONAZEPAM

REACTIONS (3)
  - Cold sweat [Unknown]
  - Dyspnoea [Unknown]
  - Overdose [Unknown]

NARRATIVE: CASE EVENT DATE: 20180430
